FAERS Safety Report 26035850 (Version 1)
Quarter: 2025Q4

REPORT INFORMATION
  Report Type: Spontaneous
  Country: EU (occurrence: EU)
  Receive Date: 20251112
  Receipt Date: 20251112
  Transmission Date: 20260118
  Serious: Yes (Death, Other)
  Sender: MERCK SHARP & DOHME LLC
  Company Number: None

PATIENT
  Age: 76 Year
  Sex: Male
  Weight: 90.6 kg

DRUGS (6)
  1. KEYTRUDA [Suspect]
     Active Substance: PEMBROLIZUMAB
     Indication: Transitional cell carcinoma metastatic
     Dosage: TREATED WITH 200 MG ON SEPTEMBER 29, 2025, AND OCTOBER 6, 2025.
     Route: 042
     Dates: start: 20250929, end: 202510
  2. METOPROLOL [Concomitant]
     Active Substance: METOPROLOL
     Indication: Cardiac fibrillation
     Route: 048
     Dates: start: 20230320
  3. ENALAPRIL [Concomitant]
     Active Substance: ENALAPRIL
     Indication: Essential hypertension
     Dosage: STRENGTH: 20 MG. DOSE NOT REPORTED.
     Route: 048
     Dates: start: 20140207
  4. AMLODIPINE [Concomitant]
     Active Substance: AMLODIPINE BESYLATE
     Indication: Essential hypertension
     Dosage: STRENGTH: 5 MG. DOSE NOT REPORTED.
     Route: 048
     Dates: start: 20230320
  5. XARELTO [Concomitant]
     Active Substance: RIVAROXABAN
     Indication: Anticoagulant therapy
     Route: 048
     Dates: start: 20230718
  6. PADCEV [Suspect]
     Active Substance: ENFORTUMAB VEDOTIN-EJFV
     Indication: Transitional cell carcinoma metastatic
     Dosage: TREATED WITH 113 MG ON SEPTEMBER 29, 2025, AND ON OCTOBER 6, 2025.
     Route: 042
     Dates: start: 20250929, end: 202510

REACTIONS (1)
  - Death [Fatal]

NARRATIVE: CASE EVENT DATE: 20251001
